FAERS Safety Report 10642566 (Version 1)
Quarter: 2014Q4

REPORT INFORMATION
  Report Type: Spontaneous
  Country: US (occurrence: None)
  Receive Date: 20141121
  Receipt Date: 20141121
  Transmission Date: 20150529
  Serious: No
  Sender: FDA-Public Use
  Company Number: 163-10004-14080526

PATIENT
  Age: 71 Year
  Sex: Male
  Weight: 85.73 kg

DRUGS (11)
  1. GLIPIZIDE. [Concomitant]
     Active Substance: GLIPIZIDE
  2. RAMIPRIL. [Concomitant]
     Active Substance: RAMIPRIL
  3. EZETIMIBE. [Concomitant]
     Active Substance: EZETIMIBE
  4. OTEZLA [Suspect]
     Active Substance: APREMILAST
     Indication: PSORIASIS
     Dosage: START PACK, 2 IN 1 D, PO
     Route: 048
     Dates: start: 20140718, end: 2014
  5. METFORMIN [Concomitant]
     Active Substance: METFORMIN HYDROCHLORIDE
  6. ETANERCEPT [Concomitant]
     Active Substance: ETANERCEPT
  7. AMLODIPINE [Concomitant]
     Active Substance: AMLODIPINE BESYLATE
  8. ASPIRIN. [Concomitant]
     Active Substance: ASPIRIN
  9. OTEZLA [Suspect]
     Active Substance: APREMILAST
     Indication: PSORIATIC ARTHROPATHY
     Dosage: START PACK, 2 IN 1 D, PO
     Route: 048
     Dates: start: 20140718, end: 2014
  10. CLOPIDOGREL [Concomitant]
     Active Substance: CLOPIDOGREL BISULFATE
  11. ATORVASTATIN [Concomitant]
     Active Substance: ATORVASTATIN

REACTIONS (2)
  - Diarrhoea [None]
  - Faeces soft [None]

NARRATIVE: CASE EVENT DATE: 201407
